FAERS Safety Report 14591542 (Version 1)
Quarter: 2018Q1

REPORT INFORMATION
  Report Type: Spontaneous
  Country: DE (occurrence: DE)
  Receive Date: 20180302
  Receipt Date: 20180302
  Transmission Date: 20180509
  Serious: Yes (Other)
  Sender: FDA-Public Use
  Company Number: DE-BAXTER-2018BAX006219

PATIENT
  Sex: Male

DRUGS (1)
  1. TISSUCOL DUO [Suspect]
     Active Substance: FIBRINOGEN HUMAN\THROMBIN HUMAN
     Indication: TISSUE SEALING
     Route: 065
     Dates: start: 20120228

REACTIONS (3)
  - Cerebrospinal fluid leakage [Unknown]
  - Headache [Unknown]
  - Incision site complication [Unknown]

NARRATIVE: CASE EVENT DATE: 20120228
